FAERS Safety Report 21358183 (Version 1)
Quarter: 2022Q3

REPORT INFORMATION
  Report Type: Spontaneous
  Country: US (occurrence: US)
  Receive Date: 20220921
  Receipt Date: 20220921
  Transmission Date: 20221027
  Serious: Yes (Other)
  Sender: FDA-Public Use
  Company Number: US-TAKEDA-2022TJP073711

PATIENT
  Age: 7 Decade
  Sex: Female

DRUGS (6)
  1. HUMAN IMMUNOGLOBULIN G [Suspect]
     Active Substance: HUMAN IMMUNOGLOBULIN G
     Indication: Mucous membrane pemphigoid
     Dosage: UNK, MONTHLY
     Route: 042
     Dates: start: 2017
  2. RITUXIMAB [Suspect]
     Active Substance: RITUXIMAB
     Indication: Mucous membrane pemphigoid
     Dosage: 375 MILLIGRAM/SQ. METER, 1/WEEK
     Route: 065
     Dates: start: 2017
  3. RITUXIMAB [Suspect]
     Active Substance: RITUXIMAB
     Dosage: 375 MILLIGRAM/SQ. METER, MONTHLY
     Route: 065
     Dates: start: 2017
  4. RITUXIMAB [Suspect]
     Active Substance: RITUXIMAB
     Dosage: 375 MILLIGRAM/SQ. METER, Q4MONTHS
     Route: 065
     Dates: start: 2017
  5. METHOTREXATE [Suspect]
     Active Substance: METHOTREXATE
     Indication: Mucous membrane pemphigoid
     Dosage: 15 MILLIGRAM, 1/WEEK
     Route: 065
     Dates: start: 201612, end: 201709
  6. PREDNISONE [Suspect]
     Active Substance: PREDNISONE
     Indication: Mucous membrane pemphigoid
     Dosage: 20 MILLIGRAM
     Route: 065

REACTIONS (2)
  - Keratitis fungal [Unknown]
  - Off label use [Unknown]
